FAERS Safety Report 13956599 (Version 1)
Quarter: 2017Q3

REPORT INFORMATION
  Report Type: Spontaneous
  Country: US (occurrence: US)
  Receive Date: 20170911
  Receipt Date: 20170911
  Transmission Date: 20171128
  Serious: Yes (Other)
  Sender: FDA-Public Use
  Company Number: US-SA-2017SA125280

PATIENT
  Age: 51 Year
  Sex: Female

DRUGS (14)
  1. GABAPENTIN. [Concomitant]
     Active Substance: GABAPENTIN
     Route: 048
  2. AMPYRA [Concomitant]
     Active Substance: DALFAMPRIDINE
     Route: 048
  3. EPIPEN [Concomitant]
     Active Substance: EPINEPHRINE
     Route: 030
  4. BIOTIN [Concomitant]
     Active Substance: BIOTIN
     Route: 065
  5. TIZANIDINE HYDROCHLORIDE. [Concomitant]
     Active Substance: TIZANIDINE HYDROCHLORIDE
     Indication: MUSCLE SPASMS
     Route: 048
  6. BACLOFEN. [Concomitant]
     Active Substance: BACLOFEN
     Route: 048
  7. PROZAC [Concomitant]
     Active Substance: FLUOXETINE HYDROCHLORIDE
     Route: 065
  8. ALPRAZOLAM. [Concomitant]
     Active Substance: ALPRAZOLAM
     Route: 048
  9. VITAMIN D [Concomitant]
     Active Substance: CHOLECALCIFEROL
     Dosage: DOSE:50000 UNIT(S)
     Route: 048
  10. OXYBUTYNIN CHLORIDE. [Concomitant]
     Active Substance: OXYBUTYNIN CHLORIDE
     Route: 048
  11. PROMETHAZINE [Concomitant]
     Active Substance: PROMETHAZINE\PROMETHAZINE HYDROCHLORIDE
     Indication: NAUSEA
     Route: 048
  12. RANITIDINE HYDROCHLORIDE. [Concomitant]
     Active Substance: RANITIDINE HYDROCHLORIDE
     Route: 048
  13. ONDANSETRON [Concomitant]
     Active Substance: ONDANSETRON
     Route: 048
  14. LEMTRADA [Suspect]
     Active Substance: ALEMTUZUMAB
     Route: 041
     Dates: start: 20161003

REACTIONS (46)
  - Thyroxine free increased [Not Recovered/Not Resolved]
  - Bacterial test [Unknown]
  - Vitamin D deficiency [Unknown]
  - CD4 lymphocytes decreased [Not Recovered/Not Resolved]
  - Oral herpes [Unknown]
  - Infection [Recovered/Resolved]
  - Urinary incontinence [Unknown]
  - Blood thyroid stimulating hormone decreased [Not Recovered/Not Resolved]
  - Thyroid function test abnormal [Unknown]
  - Fall [Unknown]
  - Muscular weakness [Unknown]
  - Pollakiuria [Unknown]
  - Red blood cells urine positive [Unknown]
  - White blood cell disorder [Unknown]
  - Constipation [Unknown]
  - Nitrite urine [Unknown]
  - Vulvovaginal mycotic infection [Unknown]
  - Urinary retention [Unknown]
  - Blood creatinine decreased [Not Recovered/Not Resolved]
  - Eosinophil count increased [Recovered/Resolved]
  - Trigeminal neuralgia [Unknown]
  - Joint injury [Recovered/Resolved]
  - Lymphocyte count decreased [Not Recovered/Not Resolved]
  - Optic atrophy [Unknown]
  - Urinary tract infection bacterial [Unknown]
  - Hyperthyroidism [Not Recovered/Not Resolved]
  - Urine analysis abnormal [Unknown]
  - Urine abnormality [Unknown]
  - Pneumonia [Unknown]
  - Cellulitis [Unknown]
  - Mean cell volume increased [Not Recovered/Not Resolved]
  - Muscle spasms [Unknown]
  - Vertigo [Unknown]
  - CD4 lymphocyte percentage decreased [Not Recovered/Not Resolved]
  - Fatigue [Unknown]
  - Insomnia [Unknown]
  - Urinary casts present [Unknown]
  - Crystal urine [Unknown]
  - Platelet count increased [Recovered/Resolved]
  - Depression [Unknown]
  - Nausea [Unknown]
  - Influenza [Unknown]
  - Neurogenic bladder [Unknown]
  - Urine leukocyte esterase positive [Unknown]
  - Protein urine present [Recovered/Resolved]
  - Occult blood [Unknown]

NARRATIVE: CASE EVENT DATE: 20161209
